FAERS Safety Report 8366514-7 (Version None)
Quarter: 2012Q2

REPORT INFORMATION
  Report Type: 
  Country: None (occurrence: None)
  Receive Date: 20120517
  Receipt Date: 20120510
  Transmission Date: 20120825
  Serious: Yes (Hospitalization)
  Sender: FDA-Public Use
  Company Number: PHHO2012US007297

PATIENT
  Sex: Male
  Weight: 110 kg

DRUGS (12)
  1. BLINDED NO TREATMENT RECEIVED [Suspect]
     Indication: CARDIOVASCULAR DISORDER
     Dosage: CODE NOT BROKEN
     Route: 048
     Dates: start: 20080826, end: 20080924
  2. BLINDED ALISKIREN [Suspect]
     Indication: CARDIOVASCULAR DISORDER
     Dosage: CODE NOT BROKEN
     Route: 048
     Dates: start: 20080826, end: 20080924
  3. TRAZODONE HCL [Concomitant]
     Indication: DISSOCIATIVE IDENTITY DISORDER
     Dosage: 150 MG, QD
     Route: 048
     Dates: start: 19980101
  4. BLINDED ALISKIREN [Suspect]
     Dosage: CODE NOT BROKEN
     Route: 048
     Dates: start: 20080925, end: 20100509
  5. PLACEBO [Suspect]
     Dosage: CODE NOT BROKEN
     Route: 048
     Dates: start: 20080925, end: 20100509
  6. FLUOXETINE [Concomitant]
     Indication: DEPRESSION
     Dosage: 60 MG, QD
     Route: 048
     Dates: start: 20071101
  7. BLINDED NO TREATMENT RECEIVED [Suspect]
     Dosage: CODE NOT BROKEN
     Route: 048
     Dates: start: 20080925, end: 20100509
  8. HUMALOG [Concomitant]
     Indication: DIABETES MELLITUS
     Dosage: 15 U, TID
     Route: 058
     Dates: start: 20100422
  9. PLACEBO [Suspect]
     Indication: CARDIOVASCULAR DISORDER
     Dosage: CODE NOT BROKEN
     Route: 048
     Dates: start: 20080826, end: 20080924
  10. LISINOPRIL [Suspect]
     Indication: HYPERTENSION
     Dosage: 20 MG, QD
     Route: 048
     Dates: start: 20120322, end: 20120404
  11. METOPROLOL TARTRATE [Suspect]
     Indication: HYPERTENSION
     Dosage: 100 MG, QD
     Route: 048
     Dates: start: 20120228, end: 20120301
  12. INSULIN GLARGINE [Concomitant]
     Indication: DIABETES MELLITUS
     Dosage: 50 U, QD
     Route: 058
     Dates: start: 20111209

REACTIONS (2)
  - ASTHENIA [None]
  - HYPOTENSION [None]
